FAERS Safety Report 8224688-2 (Version None)
Quarter: 2012Q1

REPORT INFORMATION
  Report Type: 
  Country: None (occurrence: None)
  Receive Date: 20120320
  Receipt Date: 20120320
  Transmission Date: 20120608
  Serious: No
  Sender: FDA-Public Use
  Company Number: None

PATIENT
  Sex: Female

DRUGS (1)
  1. TUBERCULIN PURIFIED PROTEIN DERIVATIVE DILUTED APLISOL 1MG VIAL SHP PH [Suspect]
     Indication: TUBERCULIN TEST
     Dosage: 0.1ML ANNUAL INTRADERMAL
     Route: 023
     Dates: start: 20120228

REACTIONS (2)
  - INJECTION SITE PAIN [None]
  - RASH MACULAR [None]
